FAERS Safety Report 15641374 (Version 2)
Quarter: 2018Q4

REPORT INFORMATION
  Report Type: Spontaneous
  Country: JP (occurrence: JP)
  Receive Date: 20181120
  Receipt Date: 20181211
  Transmission Date: 20190205
  Serious: Yes (Other)
  Sender: FDA-Public Use
  Company Number: JP-VIFOR (INTERNATIONAL) INC.-VIT-2018-10480

PATIENT
  Age: 83 Year
  Sex: Male

DRUGS (7)
  1. DIOVAN [Concomitant]
     Active Substance: VALSARTAN
     Dosage: DOSAGE IS UNCERTAIN
     Route: 065
     Dates: start: 20110426
  2. FEBURIC [Concomitant]
     Active Substance: FEBUXOSTAT
     Dosage: DOSAGE IS UNCERTAIN
     Route: 065
     Dates: start: 20140826
  3. LANSOPRAZOLE. [Concomitant]
     Active Substance: LANSOPRAZOLE
     Dosage: DOSAGE IS UNCERTAIN
     Route: 065
     Dates: start: 20110201
  4. ARGAMATE [Concomitant]
     Active Substance: CALCIUM POLYSTYRENE SULFONATE
     Dosage: DOSAGE IS UNCERTAIN
     Route: 048
     Dates: start: 20170503
  5. ADALAT CC [Concomitant]
     Active Substance: NIFEDIPINE
     Dosage: DOSAGE IS UNCERTAIN
     Route: 065
     Dates: start: 20140521
  6. MIRCERA [Suspect]
     Active Substance: METHOXY POLYETHYLENE GLYCOL-EPOETIN BETA
     Route: 058
     Dates: start: 20180904
  7. MIRCERA [Suspect]
     Active Substance: METHOXY POLYETHYLENE GLYCOL-EPOETIN BETA
     Indication: NEPHROGENIC ANAEMIA
     Route: 058
     Dates: start: 20150602

REACTIONS (3)
  - Aplasia pure red cell [Recovering/Resolving]
  - Myelodysplastic syndrome [Unknown]
  - Anaemia [Recovering/Resolving]

NARRATIVE: CASE EVENT DATE: 201810
